FAERS Safety Report 5256933-X (Version None)
Quarter: 2007Q1

REPORT INFORMATION
  Report Type: 
  Country: None (occurrence: None)
  Receive Date: 20070305
  Receipt Date: 20070305
  Transmission Date: 20070707
  Serious: Yes (Hospitalization)
  Sender: FDA-Public Use
  Company Number: None

PATIENT
  Age: 61 Year
  Sex: Male
  Weight: 84.8226 kg

DRUGS (2)
  1. MOXIFLOXACIN HCL [Suspect]
     Indication: PNEUMONIA
     Dates: start: 20061018, end: 20061102
  2. AUGMENTIN [Suspect]
     Indication: PNEUMONIA
     Dates: start: 20061112, end: 20061126

REACTIONS (1)
  - CLOSTRIDIUM DIFFICILE COLITIS [None]
